FAERS Safety Report 23550828 (Version 1)
Quarter: 2024Q1

REPORT INFORMATION
  Report Type: Spontaneous
  Country: US (occurrence: US)
  Receive Date: 20240221
  Receipt Date: 20240221
  Transmission Date: 20240410
  Serious: No
  Sender: FDA-Public Use
  Company Number: US-AMGEN-USASP2024030130

PATIENT
  Age: 83 Year
  Sex: Female
  Weight: 66 kg

DRUGS (2)
  1. MVASI [Suspect]
     Active Substance: BEVACIZUMAB-AWWB
     Indication: Anaplastic meningioma
     Dosage: 400 MILLIGRAM (1 VIAL)
     Route: 065
     Dates: start: 20231229
  2. MVASI [Suspect]
     Active Substance: BEVACIZUMAB-AWWB
     Dosage: 100 MILLIGRAM (3 VIAL)
     Route: 065

REACTIONS (3)
  - Blood glucose increased [Unknown]
  - Neurological symptom [Unknown]
  - Asthenia [Unknown]

NARRATIVE: CASE EVENT DATE: 20240212
